FAERS Safety Report 19559338 (Version 1)
Quarter: 2021Q3

REPORT INFORMATION
  Report Type: Report from Study
  Country: US (occurrence: US)
  Receive Date: 20210716
  Receipt Date: 20210716
  Transmission Date: 20211014
  Serious: Yes (Hospitalization)
  Sender: FDA-Public Use
  Company Number: US-EUSA PHARMA (UK) LIMITED-2021US000237

PATIENT
  Age: 59 Year
  Sex: Male
  Weight: 79.3 kg

DRUGS (2)
  1. SPARTALIZUMAB [Suspect]
     Active Substance: SPARTALIZUMAB
     Indication: PANCREATIC CARCINOMA
     Dosage: 300 MG/KG, EVERY 3 WEEKS
     Route: 042
     Dates: start: 20210430, end: 20210611
  2. SYLVANT [Suspect]
     Active Substance: SILTUXIMAB
     Indication: PANCREATIC CARCINOMA
     Dosage: 11 MG/KG, EVERY 3 WEEKS
     Route: 042
     Dates: start: 20210430, end: 20210611

REACTIONS (1)
  - Atrial fibrillation [Unknown]

NARRATIVE: CASE EVENT DATE: 20210616
